FAERS Safety Report 9402807 (Version 3)
Quarter: 2013Q4

REPORT INFORMATION
  Report Type: Spontaneous
  Country: US (occurrence: US)
  Receive Date: 20130716
  Receipt Date: 20131213
  Transmission Date: 20140711
  Serious: No
  Sender: FDA-Public Use
  Company Number: US-PFIZER INC-2013206532

PATIENT
  Age: 53 Year
  Sex: Female
  Weight: 61 kg

DRUGS (8)
  1. XELJANZ [Suspect]
     Indication: RHEUMATOID ARTHRITIS
     Dosage: 5 MG, 2X/DAY
     Dates: start: 201305
  2. METHOTREXATE [Suspect]
     Indication: RHEUMATOID ARTHRITIS
     Dosage: 17.5 MG(TAKING SEVEN 2.5 MG AT A TIME), WEEKLY
  3. ARAVA [Suspect]
     Indication: RHEUMATOID ARTHRITIS
     Dosage: 20 MG, ALTERNATE DAY
     Dates: start: 20130402
  4. ARAVA [Suspect]
     Dosage: 20 MG, 1X/DAY
     Dates: start: 201305, end: 20130704
  5. VITAMIN E [Concomitant]
     Dosage: 500 MG, 1X/DAY
  6. MULTIVITAMINS [Concomitant]
     Dosage: UNK
  7. ADVIL [Concomitant]
     Dosage: UNK
  8. ALEVE [Concomitant]
     Dosage: UNK

REACTIONS (2)
  - Alopecia [Not Recovered/Not Resolved]
  - Blood cholesterol increased [Unknown]
